FAERS Safety Report 8061623-4 (Version None)
Quarter: 2012Q1

REPORT INFORMATION
  Report Type: 
  Country: None (occurrence: None)
  Receive Date: 20120123
  Receipt Date: 20120118
  Transmission Date: 20120608
  Serious: Yes (Hospitalization)
  Sender: FDA-Public Use
  Company Number: PHHO2012PL001256

PATIENT
  Age: 9 Year
  Weight: 24.3 kg

DRUGS (1)
  1. SOMATROPIN [Suspect]
     Indication: SMALL FOR DATES BABY
     Dosage: 0.85 MG, QD
     Route: 058
     Dates: start: 20080723, end: 20111009

REACTIONS (1)
  - BRAIN STEM GLIOMA [None]
